FAERS Safety Report 22281171 (Version 4)
Quarter: 2024Q4

REPORT INFORMATION
  Report Type: Report from Study
  Country: BR (occurrence: BR)
  Receive Date: 20230504
  Receipt Date: 20241204
  Transmission Date: 20250115
  Serious: Yes (Hospitalization, Other)
  Sender: CELLTRION
  Company Number: BR-CELLTRION INC.-2023BR009090

PATIENT

DRUGS (5)
  1. INFLIXIMAB-DYYB [Suspect]
     Active Substance: INFLIXIMAB-DYYB
     Indication: Crohn^s disease
     Dosage: EVERY 8 WEEKS APPLY 5MG PER KG
     Route: 042
     Dates: start: 20230425
  2. INFLIXIMAB-DYYB [Suspect]
     Active Substance: INFLIXIMAB-DYYB
     Dosage: UNK
     Dates: start: 20230508
  3. AZATHIOPRINE [Concomitant]
     Active Substance: AZATHIOPRINE
     Indication: Crohn^s disease
     Dosage: 2 CAPSULE PER DAY
     Route: 048
  4. PREDNISONE [Concomitant]
     Active Substance: PREDNISONE
     Indication: Crohn^s disease
     Dosage: 2 CAPSULE PER DAY, START: 3 MONTHS
     Route: 048
     Dates: end: 20230720
  5. POLITABS MDK2 [Concomitant]
     Indication: Supplementation therapy
     Dosage: 2 PILLS A DAY
     Route: 048
     Dates: start: 202306

REACTIONS (19)
  - Condition aggravated [Unknown]
  - Intestinal fistula [Unknown]
  - Crohn^s disease [Unknown]
  - Anal fistula [Unknown]
  - Secretion discharge [Unknown]
  - Muscle spasms [Unknown]
  - Haemorrhage [Unknown]
  - Urinary tract infection [Unknown]
  - Pain [Unknown]
  - Pyrexia [Unknown]
  - Nausea [Unknown]
  - Diarrhoea [Unknown]
  - Haemorrhage [Unknown]
  - Stomatitis [Unknown]
  - Secretion discharge [Unknown]
  - Diarrhoea [Unknown]
  - Treatment delayed [Unknown]
  - Product supply issue [Unknown]
  - Intentional dose omission [Unknown]
